FAERS Safety Report 9171400 (Version 1)
Quarter: 2013Q1

REPORT INFORMATION
  Report Type: Spontaneous
  Country: US (occurrence: US)
  Receive Date: 20130319
  Receipt Date: 20130319
  Transmission Date: 20140127
  Serious: No
  Sender: FDA-Public Use
  Company Number: US-MYLANLABS-2012S1026390

PATIENT
  Age: 76 Year
  Sex: Male
  Weight: 117.94 kg

DRUGS (1)
  1. DICLOFENAC [Suspect]
     Indication: ARTHRALGIA
     Route: 048
     Dates: start: 20121216, end: 20121220

REACTIONS (2)
  - Drug effect decreased [Recovered/Resolved]
  - Arthralgia [Recovered/Resolved]
